FAERS Safety Report 15082742 (Version 1)
Quarter: 2018Q2

REPORT INFORMATION
  Report Type: Spontaneous
  Country: US (occurrence: US)
  Receive Date: 20180628
  Receipt Date: 20180628
  Transmission Date: 20180711
  Serious: No
  Sender: FDA-Public Use
  Company Number: US-009507513-1805USA009762

PATIENT
  Age: 41 Year
  Sex: Female

DRUGS (3)
  1. STERILE DILUENT (WATER) [Suspect]
     Active Substance: WATER
     Dosage: 0.7 ML LEFT AND RIGHT ARM
     Route: 058
     Dates: start: 20180520
  2. LOSARTAN. [Concomitant]
     Active Substance: LOSARTAN
     Dosage: 50/20 (UNIT NOT PROVIDED), QD
     Route: 048
  3. STERILE DILUENT (WATER) [Suspect]
     Active Substance: WATER
     Dosage: 0.7 ML LEFT AND RIGHT ARM
     Route: 030
     Dates: start: 20180520

REACTIONS (8)
  - Cough [Unknown]
  - Wrong technique in product usage process [Unknown]
  - Drug dispensing error [Unknown]
  - Drug hypersensitivity [Unknown]
  - Swelling [Unknown]
  - Pain in extremity [Unknown]
  - Injection site pain [Not Recovered/Not Resolved]
  - Injection site bruising [Unknown]

NARRATIVE: CASE EVENT DATE: 20180520
